FAERS Safety Report 21329105 (Version 1)
Quarter: 2022Q3

REPORT INFORMATION
  Report Type: Report from Study
  Country: CA (occurrence: CA)
  Receive Date: 20220913
  Receipt Date: 20220913
  Transmission Date: 20221027
  Serious: Yes (Other)
  Sender: FDA-Public Use
  Company Number: CA-JNJFOC-20220825293

PATIENT
  Age: 16 Year
  Sex: Male
  Weight: 57 kg

DRUGS (3)
  1. REMICADE [Suspect]
     Active Substance: INFLIXIMAB
     Indication: Colitis ulcerative
     Dosage: LAST DOSE ADMINISTERED ON 09-AUG-2022
     Route: 042
     Dates: start: 2020
  2. REMICADE [Suspect]
     Active Substance: INFLIXIMAB
     Route: 042
  3. VARIVAX [Concomitant]
     Active Substance: VARICELLA-ZOSTER VIRUS STRAIN OKA/MERCK LIVE ANTIGEN
     Indication: Prophylaxis
     Route: 065
     Dates: start: 20220822

REACTIONS (2)
  - Colitis ulcerative [Unknown]
  - Contraindication to vaccination [Unknown]

NARRATIVE: CASE EVENT DATE: 20220822
